FAERS Safety Report 8311587-0 (Version None)
Quarter: 2012Q2

REPORT INFORMATION
  Report Type: 
  Country: None (occurrence: None)
  Receive Date: 20120425
  Receipt Date: 20120420
  Transmission Date: 20120825
  Serious: Yes (Hospitalization, Other)
  Sender: FDA-Public Use
  Company Number: US-MERCK-1203USA00331

PATIENT
  Age: 60 Year
  Sex: Male
  Weight: 94 kg

DRUGS (19)
  1. JANUVIA [Suspect]
     Indication: TYPE 2 DIABETES MELLITUS
     Route: 048
     Dates: start: 20070201, end: 20120227
  2. NOVOLIN R [Concomitant]
     Route: 065
  3. CRESTOR [Concomitant]
     Route: 048
  4. LANTUS [Concomitant]
     Route: 065
  5. SCHIFF OMEGA-3 FISH OIL [Concomitant]
     Route: 048
  6. NEXIUM [Concomitant]
     Route: 048
  7. LYRICA [Concomitant]
     Route: 065
  8. MS CONTIN [Concomitant]
     Route: 065
  9. CULTURELLE [Concomitant]
     Indication: IRRITABLE BOWEL SYNDROME
     Route: 048
  10. ATIVAN [Concomitant]
     Indication: ANXIETY
     Route: 065
  11. LASIX [Concomitant]
     Route: 048
  12. ASPIRIN [Concomitant]
     Route: 048
  13. ACCUPRIL [Concomitant]
     Route: 048
  14. TRICOR [Concomitant]
     Route: 065
  15. NITROGLYCERIN [Concomitant]
     Route: 048
  16. RESTORIL (CHLORMEZANONE) [Concomitant]
     Route: 048
  17. TOPROL-XL [Concomitant]
     Route: 065
  18. LYRICA [Concomitant]
     Route: 065
  19. IMODIUM [Concomitant]
     Indication: DIARRHOEA
     Route: 048

REACTIONS (6)
  - DIABETIC GASTROPARESIS [None]
  - MUSCULOSKELETAL CHEST PAIN [None]
  - ANXIETY [None]
  - BUNDLE BRANCH BLOCK RIGHT [None]
  - CATARACT [None]
  - GASTROOESOPHAGEAL REFLUX DISEASE [None]
